FAERS Safety Report 7190147-1 (Version None)
Quarter: 2010Q4

REPORT INFORMATION
  Report Type: 
  Country: None (occurrence: None)
  Receive Date: 20101223
  Receipt Date: 20101220
  Transmission Date: 20110411
  Serious: Yes (Hospitalization, Other)
  Sender: FDA-Public Use
  Company Number: FR-BRISTOL-MYERS SQUIBB COMPANY-15352032

PATIENT
  Age: 64 Year
  Sex: Male

DRUGS (2)
  1. APROVEL TABS [Suspect]
     Indication: HYPERTENSION
     Dosage: 150MG 2JUL10-16JUL10:DURATION 2 WEEK,DISCON ON 25SEP2010.DOSE INCREASED TO 300MG 17JUL-01OCT10
     Route: 048
     Dates: start: 20100702, end: 20101001
  2. COVERSYL [Suspect]
     Route: 065

REACTIONS (2)
  - DRUG INTERACTION [None]
  - TOXIC SKIN ERUPTION [None]
